FAERS Safety Report 7930813-0 (Version None)
Quarter: 2011Q4

REPORT INFORMATION
  Report Type: 
  Country: None (occurrence: None)
  Receive Date: 20111121
  Receipt Date: 20111115
  Transmission Date: 20120403
  Serious: Yes (Other)
  Sender: FDA-Public Use
  Company Number: JP-GLAXOSMITHKLINE-B0763460A

PATIENT
  Age: 64 Year
  Sex: Female

DRUGS (6)
  1. DESYREL [Concomitant]
     Dosage: 50MG PER DAY
     Route: 048
     Dates: start: 20111107
  2. LAMICTAL [Suspect]
     Indication: BIPOLAR DISORDER
     Dosage: 25MG PER DAY
     Route: 048
     Dates: start: 20111024, end: 20111106
  3. SENIRAN [Concomitant]
     Dosage: 6MG PER DAY
     Route: 048
     Dates: start: 20111024
  4. LAMICTAL [Suspect]
     Dosage: 50MG PER DAY
     Route: 048
     Dates: start: 20111107, end: 20111113
  5. UNKNOWN DRUG [Concomitant]
     Dosage: 150MG PER DAY
     Route: 048
     Dates: start: 20111024
  6. DESYREL [Concomitant]
     Dosage: 25MG PER DAY
     Route: 048
     Dates: start: 20111024, end: 20111106

REACTIONS (3)
  - RASH [None]
  - URTICARIA [None]
  - RASH MACULAR [None]
